FAERS Safety Report 6811113-9 (Version None)
Quarter: 2010Q2

REPORT INFORMATION
  Report Type: 
  Country: None (occurrence: None)
  Receive Date: 20100630
  Receipt Date: 20090616
  Transmission Date: 20101027
  Serious: No
  Sender: FDA-Public Use
  Company Number: US-PFIZER INC-2009176634

PATIENT
  Sex: Female
  Weight: 77.1 kg

DRUGS (4)
  1. ESTRING [Suspect]
     Indication: POSTMENOPAUSE
     Dosage: UNK
     Dates: start: 20090104
  2. ESTRING [Suspect]
     Indication: VULVOVAGINAL DRYNESS
  3. NEXIUM [Concomitant]
     Indication: OESOPHAGITIS
  4. MUCINEX [Concomitant]
     Indication: CHRONIC SINUSITIS

REACTIONS (3)
  - ABDOMINAL DISTENSION [None]
  - DYSPHAGIA [None]
  - ERUCTATION [None]
